FAERS Safety Report 7087742-7 (Version None)
Quarter: 2010Q4

REPORT INFORMATION
  Report Type: 
  Country: None (occurrence: None)
  Receive Date: 20101108
  Receipt Date: 20101028
  Transmission Date: 20110411
  Serious: No
  Sender: FDA-Public Use
  Company Number: 2008BI026978

PATIENT
  Sex: Female

DRUGS (1)
  1. TYSABRI [Suspect]
     Indication: MULTIPLE SCLEROSIS
     Route: 042
     Dates: start: 20080922

REACTIONS (14)
  - AGRAPHIA [None]
  - ARTHROPOD BITE [None]
  - ARTHROPOD STING [None]
  - CONFUSIONAL STATE [None]
  - EAR PRURITUS [None]
  - FEELING ABNORMAL [None]
  - HEADACHE [None]
  - MEMORY IMPAIRMENT [None]
  - NAUSEA [None]
  - PRURITUS [None]
  - PSYCHOMOTOR HYPERACTIVITY [None]
  - STRESS [None]
  - VISION BLURRED [None]
  - VISUAL FIELD DEFECT [None]
